FAERS Safety Report 5010693-6 (Version None)
Quarter: 2006Q2

REPORT INFORMATION
  Report Type: 
  Country: None (occurrence: None)
  Receive Date: 20060523
  Receipt Date: 20060516
  Transmission Date: 20061013
  Serious: Yes (Other)
  Sender: FDA-Public Use
  Company Number: S06-USA-01893-01

PATIENT
  Age: 58 Year
  Sex: Female

DRUGS (8)
  1. THYROID TAB [Suspect]
     Indication: HYPOTHYROIDISM
     Dates: start: 19640101
  2. THYROID TAB [Suspect]
     Indication: THYROIDECTOMY
     Dates: start: 19640101
  3. THYROID TAB [Suspect]
     Indication: HYPOTHYROIDISM
     Dosage: 90 MG QD PO
     Route: 048
     Dates: end: 20060301
  4. THYROID TAB [Suspect]
     Indication: THYROIDECTOMY
     Dosage: 90 MG QD PO
     Route: 048
     Dates: end: 20060301
  5. THYROID TAB [Suspect]
     Indication: HYPOTHYROIDISM
     Dosage: 105 MG QD PO
     Route: 048
     Dates: start: 20060301, end: 20060512
  6. THYROID TAB [Suspect]
     Indication: THYROIDECTOMY
     Dosage: 105 MG QD PO
     Route: 048
     Dates: start: 20060301, end: 20060512
  7. ROCALTROL [Concomitant]
  8. ASPIRIN [Concomitant]

REACTIONS (8)
  - ERYTHEMA [None]
  - HEART RATE INCREASED [None]
  - HYPERTENSION [None]
  - HYPOAESTHESIA [None]
  - MENTAL IMPAIRMENT [None]
  - RASH [None]
  - TREMOR [None]
  - VASCULAR INJURY [None]
